FAERS Safety Report 8383212-4 (Version None)
Quarter: 2012Q2

REPORT INFORMATION
  Report Type: 
  Country: None (occurrence: None)
  Receive Date: 20120524
  Receipt Date: 20120511
  Transmission Date: 20120825
  Serious: Yes (Hospitalization)
  Sender: FDA-Public Use
  Company Number: AU-JNJFOC-20120306572

PATIENT
  Sex: Male

DRUGS (10)
  1. STELARA [Suspect]
     Indication: PSORIASIS
     Route: 058
     Dates: start: 20110330, end: 20110330
  2. STELARA [Suspect]
     Route: 058
     Dates: start: 20100427, end: 20100427
  3. STELARA [Suspect]
     Route: 058
     Dates: start: 20101230, end: 20101230
  4. STELARA [Suspect]
     Route: 058
     Dates: start: 20100715, end: 20100715
  5. STELARA [Suspect]
     Route: 058
     Dates: start: 20110907, end: 20110907
  6. STELARA [Suspect]
     Route: 058
     Dates: start: 20120502, end: 20120502
  7. STELARA [Suspect]
     Route: 058
     Dates: start: 20101007, end: 20101007
  8. STELARA [Suspect]
     Route: 058
     Dates: start: 20100105, end: 20100105
  9. STELARA [Suspect]
     Route: 058
     Dates: start: 20110616, end: 20110616
  10. STELARA [Suspect]
     Route: 058
     Dates: start: 20111222, end: 20111222

REACTIONS (5)
  - AGGRESSION [None]
  - PSORIASIS [None]
  - INAPPROPRIATE SCHEDULE OF DRUG ADMINISTRATION [None]
  - DIABETES MELLITUS [None]
  - DEMENTIA [None]
